FAERS Safety Report 6746878-8 (Version None)
Quarter: 2010Q2

REPORT INFORMATION
  Report Type: 
  Country: None (occurrence: None)
  Receive Date: 20100528
  Receipt Date: 20091021
  Transmission Date: 20101027
  Serious: No
  Sender: FDA-Public Use
  Company Number: US-ASTRAZENECA-2009SE31989

PATIENT
  Sex: Female

DRUGS (3)
  1. PRILOSEC OTC [Suspect]
     Route: 048
     Dates: start: 20091017, end: 20091017
  2. ANTI-ASTHMATICS [Concomitant]
     Dosage: UNKNOWN
  3. CHRONIC OBSTRUCTIVE PULMONARY DISEASE MEDICATIONS [Concomitant]
     Dosage: UNKNOWN

REACTIONS (4)
  - ABDOMINAL DISCOMFORT [None]
  - INCORRECT DRUG ADMINISTRATION DURATION [None]
  - MALAISE [None]
  - WRONG TECHNIQUE IN DRUG USAGE PROCESS [None]
